APPROVED DRUG PRODUCT: METOCLOPRAMIDE HYDROCHLORIDE
Active Ingredient: METOCLOPRAMIDE HYDROCHLORIDE
Strength: EQ 5MG BASE/ML
Dosage Form/Route: INJECTABLE;INJECTION
Application: A073135 | Product #001 | TE Code: AP
Applicant: TEVA PHARMACEUTICALS USA
Approved: Nov 27, 1991 | RLD: No | RS: No | Type: RX